FAERS Safety Report 8288055-8 (Version None)
Quarter: 2012Q2

REPORT INFORMATION
  Report Type: 
  Country: None (occurrence: None)
  Receive Date: 20120416
  Receipt Date: 20120412
  Transmission Date: 20120825
  Serious: No
  Sender: FDA-Public Use
  Company Number: US-TEVA-333453USA

PATIENT
  Age: 17 Year
  Sex: Female
  Weight: 59.02 kg

DRUGS (2)
  1. PLAN B ONE-STEP [Suspect]
     Indication: POST COITAL CONTRACEPTION
     Dosage: 1.5 MILLIGRAM;
     Route: 048
     Dates: start: 20120410, end: 20120410
  2. ACCUTANE [Concomitant]
     Indication: ACNE

REACTIONS (4)
  - HEADACHE [None]
  - MENSTRUATION IRREGULAR [None]
  - ABDOMINAL PAIN UPPER [None]
  - VAGINAL DISCHARGE [None]
